FAERS Safety Report 7306287-X (Version None)
Quarter: 2011Q1

REPORT INFORMATION
  Report Type: 
  Country: None (occurrence: None)
  Receive Date: 20110222
  Receipt Date: 20110216
  Transmission Date: 20110831
  Serious: Yes (Death, Hospitalization, Other)
  Sender: FDA-Public Use
  Company Number: PHHY2010US81856

PATIENT
  Sex: Female
  Weight: 35.374 kg

DRUGS (20)
  1. OMEPRAZOLE [Concomitant]
     Dosage: 1 DF, BID
     Route: 048
  2. ASPIRIN [Concomitant]
  3. CYPROHEPTADINE HCL [Concomitant]
     Dosage: 2 DF, BID
     Route: 048
  4. HYDROCHLOROTHIAZIDE [Concomitant]
     Dosage: 0.5 DF, DAILY
     Route: 048
  5. MULTI-VITAMIN [Concomitant]
     Dosage: 1 DF, DAILY
     Route: 048
  6. BENADRYL [Concomitant]
     Indication: PRURITUS
     Dosage: 50 MG, EVERY 6 HOURS PRN
  7. TYLENOL (CAPLET) [Concomitant]
     Dosage: 1 DF, DAILY
     Route: 048
  8. ATENOLOL [Concomitant]
     Dosage: 1 DF, BID
     Route: 048
  9. TIMOPTIC [Concomitant]
  10. TRAMADOL HCL [Concomitant]
     Dosage: 1 DF, TID
     Route: 048
  11. DIOVAN [Concomitant]
     Dosage: 1 DF, DAILY
     Route: 048
  12. AMICAR [Concomitant]
     Dosage: 1 DF, UNK
     Route: 048
  13. BISMUTH [Concomitant]
     Dosage: 240 MG, BID
  14. MULTIVITAMIN [Concomitant]
     Dosage: 2 DF, BID
     Route: 048
  15. PRILOSEC [Concomitant]
     Dosage: 2 DF, PRN
     Route: 048
  16. EXJADE [Suspect]
     Indication: ERYTHROLEUKAEMIA
     Dosage: 2 DF, BID
     Route: 048
     Dates: start: 20100401, end: 20101001
  17. POTASSIUM [Concomitant]
  18. ZANTAC [Concomitant]
     Dosage: 1 DF, BID
     Route: 048
  19. CLONIDINE [Concomitant]
     Dosage: 1 DF, BID
     Route: 048
  20. AMICAR [Concomitant]
     Dosage: 5 ML, QD
     Route: 048

REACTIONS (20)
  - WHITE BLOOD CELL COUNT INCREASED [None]
  - DYSPHAGIA [None]
  - NORMOCHROMIC NORMOCYTIC ANAEMIA [None]
  - CONTUSION [None]
  - MUSCLE HAEMORRHAGE [None]
  - DECREASED APPETITE [None]
  - THROMBOCYTOPENIA [None]
  - BLOOD URINE PRESENT [None]
  - HAEMOGLOBIN DECREASED [None]
  - HYPOXIA [None]
  - PANCYTOPENIA [None]
  - RENAL FAILURE ACUTE [None]
  - PETECHIAE [None]
  - PLEURAL EFFUSION [None]
  - MASS [None]
  - PAIN IN EXTREMITY [None]
  - HYPOAESTHESIA [None]
  - DEATH [None]
  - ASTHENIA [None]
  - BLOOD GLUCOSE INCREASED [None]
